FAERS Safety Report 9766023 (Version 1)
Quarter: 2013Q4

REPORT INFORMATION
  Report Type: Spontaneous
  Country: US (occurrence: US)
  Receive Date: 20131217
  Receipt Date: 20131217
  Transmission Date: 20140711
  Serious: No
  Sender: FDA-Public Use
  Company Number: US-GLAXOSMITHKLINE-A1015322A

PATIENT
  Sex: Male

DRUGS (1)
  1. VOTRIENT [Suspect]
     Indication: RENAL CELL CARCINOMA
     Dosage: 800MG PER DAY
     Route: 048
     Dates: start: 20120920, end: 20130228

REACTIONS (5)
  - Rash generalised [Recovering/Resolving]
  - Rash [Unknown]
  - Stomatitis [Unknown]
  - Disease progression [Not Recovered/Not Resolved]
  - Bone lesion [Not Recovered/Not Resolved]
